FAERS Safety Report 8826800 (Version 1)
Quarter: 2012Q4

REPORT INFORMATION
  Report Type: 
  Country: BR (occurrence: BR)
  Receive Date: 20121008
  Receipt Date: 20121008
  Transmission Date: 20130627
  Serious: Yes (Death, Hospitalization)
  Sender: FDA-Public Use
  Company Number: BR-MYLANLABS-2012S1020228

PATIENT
  Age: 61 Year
  Sex: Male

DRUGS (7)
  1. LITHIUM [Suspect]
     Indication: BIPOLAR DISORDER
     Dosage: 600 mg/day
     Route: 065
  2. LITHIUM [Suspect]
     Indication: BIPOLAR DISORDER
     Dosage: Accidental overdose
     Route: 065
  3. ENALAPRIL [Suspect]
     Dosage: 40 mg/day
     Route: 065
  4. INSULIN [Concomitant]
  5. METFORMIN [Concomitant]
     Route: 065
  6. LEVOTHYROXINE SODIUM [Concomitant]
     Dosage: 50 microg/day
     Route: 065
  7. ATENOLOL [Concomitant]
     Dosage: 100 mg/day
     Route: 065

REACTIONS (12)
  - Accidental overdose [Fatal]
  - Bradycardia [Recovered/Resolved]
  - Atrial fibrillation [Recovered/Resolved]
  - Tachycardia [Recovered/Resolved]
  - Ventricular tachycardia [Recovered/Resolved]
  - Bradyarrhythmia [Recovered/Resolved]
  - Toxicity to various agents [Recovered/Resolved]
  - Hypotension [Recovered/Resolved]
  - Depressed level of consciousness [Recovered/Resolved]
  - Confusional state [Recovered/Resolved]
  - Muscle rigidity [Recovered/Resolved]
  - Metabolic encephalopathy [Recovered/Resolved]
